FAERS Safety Report 9410463 (Version 1)
Quarter: 2013Q3

REPORT INFORMATION
  Report Type: Spontaneous
  Country: IT (occurrence: IT)
  Receive Date: 20130719
  Receipt Date: 20130719
  Transmission Date: 20140515
  Serious: Yes (Death, Other)
  Sender: FDA-Public Use
  Company Number: IT-CELGENEUS-083-20785-13070917

PATIENT
  Sex: 0

DRUGS (1)
  1. THALIDOMIDE [Suspect]
     Indication: PLASMA CELL MYELOMA
     Dosage: 100 TO 600 MG
     Route: 048

REACTIONS (15)
  - Death [Fatal]
  - Plasma cell myeloma [Fatal]
  - No therapeutic response [Fatal]
  - Deep vein thrombosis [Unknown]
  - Neuropathy peripheral [Unknown]
  - Bradycardia [Unknown]
  - Hypothyroidism [Unknown]
  - Asthenia [Unknown]
  - Fatigue [Unknown]
  - Lethargy [Unknown]
  - Constipation [Unknown]
  - Rash [Unknown]
  - Mood altered [Unknown]
  - Depression [Unknown]
  - Plasma cell myeloma recurrent [Unknown]
